FAERS Safety Report 21337553 (Version 2)
Quarter: 2022Q3

REPORT INFORMATION
  Report Type: Spontaneous
  Country: PT (occurrence: PT)
  Receive Date: 20220915
  Receipt Date: 20220928
  Transmission Date: 20221027
  Serious: Yes (Death)
  Sender: FDA-Public Use
  Company Number: PT-TEVA-2022-PT-2072362

PATIENT
  Age: 25 Year
  Sex: Male

DRUGS (3)
  1. TOPIRAMATE [Interacting]
     Active Substance: TOPIRAMATE
     Indication: Product used for unknown indication
     Route: 065
  2. DESMETRAMADOL [Suspect]
     Active Substance: DESMETRAMADOL
     Indication: Product used for unknown indication
     Route: 065
  3. MIANSERIN [Interacting]
     Active Substance: MIANSERIN
     Indication: Product used for unknown indication
     Route: 065

REACTIONS (3)
  - Toxicity to various agents [Fatal]
  - Drug abuse [Fatal]
  - Drug interaction [Fatal]
